FAERS Safety Report 12209097 (Version 4)
Quarter: 2016Q2

REPORT INFORMATION
  Report Type: Spontaneous
  Country: HR (occurrence: HR)
  Receive Date: 20160324
  Receipt Date: 20160420
  Transmission Date: 20160815
  Serious: Yes (Hospitalization, Other)
  Sender: FDA-Public Use
  Company Number: HR-PFIZER INC-2016168401

PATIENT
  Age: 23 Year
  Sex: Female

DRUGS (6)
  1. SOLU-MEDROL [Interacting]
     Active Substance: METHYLPREDNISOLONE SODIUM SUCCINATE
     Dosage: 40 MG, UNK
     Route: 042
  2. MEDROL [Interacting]
     Active Substance: METHYLPREDNISOLONE
     Dosage: 4 MG, UNK
  3. MEDROL [Interacting]
     Active Substance: METHYLPREDNISOLONE
     Dosage: A GRADUAL REDUCTION IN DOSAGE
  4. SOLU-MEDROL [Suspect]
     Active Substance: METHYLPREDNISOLONE SODIUM SUCCINATE
     Indication: IMMUNE THROMBOCYTOPENIC PURPURA
     Dosage: 80 MG, UNK
     Route: 042
     Dates: start: 20160220
  5. MEDROL [Interacting]
     Active Substance: METHYLPREDNISOLONE
     Indication: IMMUNE THROMBOCYTOPENIC PURPURA
     Dosage: 48 MG, UNK
  6. NORMABEL [Concomitant]
     Active Substance: DIAZEPAM

REACTIONS (38)
  - Acne [Unknown]
  - Weight decreased [Unknown]
  - Erythema [Unknown]
  - Depression [Unknown]
  - Amnesia [Unknown]
  - Aggression [Unknown]
  - Cushingoid [Unknown]
  - Gastric haemorrhage [Unknown]
  - Oedema peripheral [Unknown]
  - Bipolar disorder [Unknown]
  - Mental disorder [Unknown]
  - Sleep apnoea syndrome [Unknown]
  - Oedema [Unknown]
  - Blood pressure fluctuation [Unknown]
  - Vascular rupture [Unknown]
  - Joint swelling [Recovered/Resolved]
  - Dyspepsia [Unknown]
  - Diarrhoea [Unknown]
  - Contact lens intolerance [Unknown]
  - Menstrual disorder [Unknown]
  - Impaired healing [Unknown]
  - Toxicity to various agents [Unknown]
  - Suicidal ideation [Unknown]
  - Chills [Unknown]
  - Abdominal discomfort [Unknown]
  - Hirsutism [Unknown]
  - Palpitations [Unknown]
  - Drug hypersensitivity [Unknown]
  - Faeces discoloured [Recovered/Resolved]
  - Hypertension [Unknown]
  - Osteoporosis [Unknown]
  - Contusion [Unknown]
  - Asthenia [Unknown]
  - Food interaction [Unknown]
  - Anxiety [Unknown]
  - Hypotension [Recovered/Resolved]
  - Headache [Unknown]
  - Fatigue [Unknown]
